FAERS Safety Report 4959546-X (Version None)
Quarter: 2006Q1

REPORT INFORMATION
  Report Type: 
  Country: None (occurrence: None)
  Receive Date: 20060331
  Receipt Date: 20060302
  Transmission Date: 20060701
  Serious: Yes (Other)
  Sender: FDA-Public Use
  Company Number: 200600974

PATIENT
  Age: 54 Year
  Sex: Female

DRUGS (4)
  1. TAGAMET [Suspect]
     Indication: PANCREATITIS
     Route: 065
  2. MEROPEN [Suspect]
     Indication: PANCREATITIS
     Route: 042
  3. FOY [Concomitant]
     Route: 065
  4. NICHOLIN [Concomitant]
     Route: 065

REACTIONS (1)
  - LIVER DISORDER [None]
